FAERS Safety Report 5376374-4 (Version None)
Quarter: 2007Q3

REPORT INFORMATION
  Report Type: 
  Country: None (occurrence: None)
  Receive Date: 20070702
  Receipt Date: 20070627
  Transmission Date: 20080115
  Serious: Yes (Hospitalization)
  Sender: FDA-Public Use
  Company Number: ES-PFIZER INC-2007036292

PATIENT
  Age: 95 Year
  Sex: Female

DRUGS (3)
  1. ALDACTONE [Suspect]
     Indication: ESSENTIAL HYPERTENSION
     Route: 048
  2. ATACAND [Suspect]
     Indication: ESSENTIAL HYPERTENSION
     Dosage: FREQ:DAILY
     Route: 048
  3. DIGOXIN [Suspect]
     Indication: ESSENTIAL HYPERTENSION
     Route: 048

REACTIONS (2)
  - HYPERKALAEMIA [None]
  - STUPOR [None]
